FAERS Safety Report 4576023-9 (Version None)
Quarter: 2005Q1

REPORT INFORMATION
  Report Type: 
  Country: None (occurrence: None)
  Receive Date: 20050209
  Receipt Date: 20050201
  Transmission Date: 20050727
  Serious: Yes (Other)
  Sender: FDA-Public Use
  Company Number: FR-ROCHE-394308

PATIENT
  Sex: Female

DRUGS (3)
  1. NAPROXEN [Suspect]
     Indication: RHEUMATOID ARTHRITIS
     Route: 048
  2. LEVOTHYROX [Concomitant]
     Indication: HYPOTHYROIDISM
     Route: 048
     Dates: start: 19960615
  3. BISOPROLOL FUMARATE [Concomitant]
     Route: 048

REACTIONS (2)
  - FATIGUE [None]
  - HYPERTENSION [None]
